FAERS Safety Report 25246378 (Version 3)
Quarter: 2025Q2

REPORT INFORMATION
  Report Type: Spontaneous
  Country: US (occurrence: US)
  Receive Date: 20250428
  Receipt Date: 20250529
  Transmission Date: 20250717
  Serious: Yes (Disabling, Other)
  Sender: AMGEN
  Company Number: US-AMGEN-USASP2025080658

PATIENT
  Age: 65 Year
  Sex: Female

DRUGS (40)
  1. TEPEZZA [Suspect]
     Active Substance: TEPROTUMUMAB-TRBW
     Indication: Exophthalmos
     Dosage: 777.27 MILLIGRAM, Q3WK (10 MG/KG) (FIRST INFUSION)
     Route: 040
     Dates: start: 20200327
  2. TEPEZZA [Suspect]
     Active Substance: TEPROTUMUMAB-TRBW
     Indication: Endocrine ophthalmopathy
     Dosage: 1534.5 MILLIGRAM, Q3WK (20 MG/KG) (SECOND INFUSION)
     Route: 040
     Dates: start: 20200417
  3. TEPEZZA [Suspect]
     Active Substance: TEPROTUMUMAB-TRBW
     Indication: Toxic goitre
     Dosage: 1545.5 MILLIGRAM, Q3WK (20 MG/KG) (THIRD INFUSION)
     Route: 040
     Dates: start: 20200508
  4. TEPEZZA [Suspect]
     Active Substance: TEPROTUMUMAB-TRBW
     Indication: Graves^ disease
     Dosage: 1527.27 MILLIGRAM, Q3WK (20 MG/KG) (FOURTH INFUSION)
     Route: 040
     Dates: start: 20200529
  5. TEPEZZA [Suspect]
     Active Substance: TEPROTUMUMAB-TRBW
     Dosage: 1536.4 MILLIGRAM, Q3WK (20 MG/KG) (FIFTH INFUSION)
     Route: 040
     Dates: start: 20200619
  6. TEPEZZA [Suspect]
     Active Substance: TEPROTUMUMAB-TRBW
     Dosage: 1541.8 MILLIGRAM, Q3WK (20 MG/KG) (SIXTH INFUSION)
     Route: 040
     Dates: start: 20200710
  7. TEPEZZA [Suspect]
     Active Substance: TEPROTUMUMAB-TRBW
     Dosage: 1520 MILLIGRAM, Q3WK (20 MG/KG) (SEVENTH INFUSION)
     Route: 040
     Dates: start: 20200731
  8. TEPEZZA [Suspect]
     Active Substance: TEPROTUMUMAB-TRBW
     Dosage: 1518.2 MILLIGRAM, Q3WK (20 MG/KG) (LAST EIGHTH INFUSION)
     Route: 040
     Dates: start: 20200821
  9. PREDNISONE [Suspect]
     Active Substance: PREDNISONE
     Indication: Toxic goitre
     Dosage: 20 MILLIGRAM, QD (3 DAYS)
     Route: 048
     Dates: start: 202001
  10. PREDNISONE [Suspect]
     Active Substance: PREDNISONE
     Indication: Graves^ disease
     Dosage: 10 MILLIGRAM, QD
     Route: 048
     Dates: start: 202001
  11. SODIUM CHLORIDE [Concomitant]
     Active Substance: SODIUM CHLORIDE
  12. VALSARTAN [Concomitant]
     Active Substance: VALSARTAN
     Dosage: 80 MILLIGRAM, QD
     Route: 048
  13. METHIMAZOLE [Concomitant]
     Active Substance: METHIMAZOLE
     Dosage: 5 MILLIGRAM, QD (1 TABLET WITH FOOD)
     Route: 048
  14. AMLODIPINE BESYLATE [Concomitant]
     Active Substance: AMLODIPINE BESYLATE
     Dosage: 5 MILLIGRAM, QD (1 TABLET)
     Route: 048
  15. CEFZIL [Concomitant]
     Active Substance: CEFPROZIL
  16. LEVOTHYROXINE SODIUM [Concomitant]
     Active Substance: LEVOTHYROXINE SODIUM
  17. PROTONIX [Concomitant]
     Active Substance: PANTOPRAZOLE SODIUM
     Dosage: 40 MILLIGRAM, QD
     Route: 048
  18. CELEBREX [Concomitant]
     Active Substance: CELECOXIB
     Dosage: 200 MILLIGRAM, QD
     Route: 048
  19. TRAMADOL [Concomitant]
     Active Substance: TRAMADOL
     Dosage: 50 MILLIGRAM, QID
     Route: 048
  20. CYCLOBENZAPRINE [Concomitant]
     Active Substance: CYCLOBENZAPRINE
     Dosage: 10 MILLIGRAM, TID
     Route: 048
  21. VOLTAREN [Concomitant]
     Active Substance: DICLOFENAC SODIUM
     Dosage: 1 GRAM, TID
     Route: 061
  22. PANTOPRAZOLE [Concomitant]
     Active Substance: PANTOPRAZOLE
     Dosage: 40 MILLIGRAM, BID
     Route: 048
  23. METFORMIN [Concomitant]
     Active Substance: METFORMIN HYDROCHLORIDE
     Dosage: 500 MILLIGRAM, BID
     Route: 048
  24. NORCO [Concomitant]
     Active Substance: ACETAMINOPHEN\HYDROCODONE BITARTRATE
     Dosage: 330 MILLIGRAM, QID (325 MG-5 MG)
     Route: 048
  25. CIPROFLOXACIN [Concomitant]
     Active Substance: CIPROFLOXACIN
     Dosage: 500 MILLIGRAM, BID
     Route: 048
  26. TAPAZOLE [Concomitant]
     Active Substance: METHIMAZOLE
     Dosage: 5 MILLIGRAM, QD
     Route: 048
  27. GENTAMICIN [Concomitant]
     Active Substance: GENTAMICIN
     Dosage: UNK UNK, QID ( 0.3% SOLUTION; OPH 2 GGTS QID OS)
     Route: 047
  28. CEFDINIR [Concomitant]
     Active Substance: CEFDINIR
     Dosage: 300 MILLIGRAM, BID
     Route: 048
  29. VITAMIN D2 [Concomitant]
     Active Substance: ERGOCALCIFEROL
     Dosage: 50000 INTERNATIONAL UNIT, QWK
     Route: 048
  30. DIOVAN [Concomitant]
     Active Substance: VALSARTAN
     Route: 048
  31. MELOXICAM [Concomitant]
     Active Substance: MELOXICAM
     Dosage: 15 MILLIGRAM, QD
     Route: 048
  32. MEDROL [Concomitant]
     Active Substance: METHYLPREDNISOLONE
     Route: 048
  33. PLAVIX [Concomitant]
     Active Substance: CLOPIDOGREL BISULFATE
     Route: 065
  34. ASPIRIN [Concomitant]
     Active Substance: ASPIRIN
     Dosage: 81 MILLIGRAM, QD
     Route: 048
  35. SYNTHROID [Concomitant]
     Active Substance: LEVOTHYROXINE SODIUM
     Dosage: 150 MICROGRAM, QD
     Route: 048
  36. ANTIVERT [Concomitant]
     Active Substance: MECLIZINE HYDROCHLORIDE
     Dosage: 25 MILLIGRAM, QD
     Route: 048
  37. CRESTOR [Concomitant]
     Active Substance: ROSUVASTATIN CALCIUM
     Dosage: 20 MILLIGRAM, QD
     Route: 048
  38. TRIAMCINOLONE ACETONIDE [Concomitant]
     Active Substance: TRIAMCINOLONE ACETONIDE
     Route: 065
  39. LIDOCAINE [Concomitant]
     Active Substance: LIDOCAINE
     Route: 065
  40. BUPIVACAINE HYDROCHLORIDE [Concomitant]
     Active Substance: BUPIVACAINE HYDROCHLORIDE

REACTIONS (64)
  - Graves^ disease [Unknown]
  - Endocrine ophthalmopathy [Unknown]
  - Deafness permanent [Not Recovered/Not Resolved]
  - Cerebral small vessel ischaemic disease [Unknown]
  - Arteriosclerosis coronary artery [Unknown]
  - Autoimmune thyroiditis [Unknown]
  - Thyroid cancer [Unknown]
  - Type 2 diabetes mellitus [Unknown]
  - Pain [Unknown]
  - Anxiety [Unknown]
  - Emotional distress [Unknown]
  - Impaired quality of life [Unknown]
  - Tinnitus [Not Recovered/Not Resolved]
  - Dizziness [Unknown]
  - Urinary tract infection [Unknown]
  - Discomfort [Unknown]
  - Arthralgia [Recovered/Resolved]
  - Rash pruritic [Not Recovered/Not Resolved]
  - Formication [Recovered/Resolved]
  - Myalgia [Not Recovered/Not Resolved]
  - Eye infection [Recovered/Resolved]
  - Pelvic pain [Recovered/Resolved]
  - Gait inability [Recovered/Resolved]
  - High density lipoprotein decreased [Unknown]
  - Low density lipoprotein increased [Unknown]
  - Non-high-density lipoprotein cholesterol increased [Unknown]
  - Red blood cell sedimentation rate increased [Unknown]
  - Weight increased [Unknown]
  - Essential hypertension [Unknown]
  - Lumbosacral radiculopathy [Unknown]
  - Intervertebral disc disorder [Unknown]
  - Diplopia [Not Recovered/Not Resolved]
  - Blood cholesterol increased [Unknown]
  - Blood calcium decreased [Unknown]
  - Blood thyroid stimulating hormone increased [Unknown]
  - Faecal occult blood positive [Unknown]
  - Thyroxine free increased [Unknown]
  - Vitamin D decreased [Unknown]
  - Type V hyperlipidaemia [Unknown]
  - Calcium deficiency [Unknown]
  - Rotator cuff syndrome [Unknown]
  - Osteoarthritis [Unknown]
  - Tendon disorder [Unknown]
  - Bursitis [Unknown]
  - Chondromalacia [Unknown]
  - Musculoskeletal stiffness [Unknown]
  - Neck pain [Unknown]
  - Urine abnormality [Unknown]
  - Red blood cell count increased [Unknown]
  - Bacterial test positive [Unknown]
  - Road traffic accident [Unknown]
  - Mammogram abnormal [Unknown]
  - Lumbar spinal stenosis [Unknown]
  - Back pain [Unknown]
  - Facet joint syndrome [Unknown]
  - Haemoglobin increased [Unknown]
  - Vertigo [Unknown]
  - Haematocrit increased [Unknown]
  - Product use complaint [Unknown]
  - Glucose tolerance impaired [Unknown]
  - Glycosylated haemoglobin increased [Unknown]
  - SARS-CoV-2 test positive [Unknown]
  - Blood glucose increased [Unknown]
  - Dry skin [Unknown]

NARRATIVE: CASE EVENT DATE: 20200128
